FAERS Safety Report 5413716-5 (Version None)
Quarter: 2007Q3

REPORT INFORMATION
  Report Type: 
  Country: None (occurrence: None)
  Receive Date: 20070814
  Receipt Date: 20070808
  Transmission Date: 20080115
  Serious: Yes (Hospitalization)
  Sender: FDA-Public Use
  Company Number: B0483084A

PATIENT
  Age: 93 Year
  Sex: Female

DRUGS (5)
  1. AUGMENTIN '125' [Suspect]
     Indication: DRUG USE FOR UNKNOWN INDICATION
     Route: 048
     Dates: start: 20070214, end: 20070216
  2. SOTALOL HYDROCHLORIDE [Concomitant]
     Dosage: 80MG IN THE MORNING
     Route: 065
  3. LASIX [Concomitant]
     Dosage: 40MG IN THE MORNING
     Route: 065
  4. AMLODIPINE [Concomitant]
     Dosage: 5MG IN THE MORNING
     Route: 065
  5. TRINITRINE [Concomitant]
     Dosage: 5MG PER DAY
     Route: 050

REACTIONS (10)
  - BRONCHITIS [None]
  - DERMATITIS EXFOLIATIVE [None]
  - DYSPNOEA [None]
  - ERYTHEMA [None]
  - HEPATIC PAIN [None]
  - HEPATOJUGULAR REFLUX [None]
  - PULMONARY OEDEMA [None]
  - RIGHT VENTRICULAR FAILURE [None]
  - SKIN DISORDER [None]
  - TOXIC SKIN ERUPTION [None]
